FAERS Safety Report 6172289-2 (Version None)
Quarter: 2009Q2

REPORT INFORMATION
  Report Type: 
  Country: None (occurrence: None)
  Receive Date: 20090429
  Receipt Date: 20090424
  Transmission Date: 20091009
  Serious: Yes (Hospitalization)
  Sender: FDA-Public Use
  Company Number: FR-WYE-G03562609

PATIENT
  Sex: Female

DRUGS (8)
  1. EFFEXOR [Suspect]
     Dosage: 37.5 MG 1 TIME DAILY; OCCASIONALLY TAKEN
     Route: 048
     Dates: start: 20070901, end: 20090101
  2. EFFEXOR [Suspect]
     Dosage: 37.5 MG 1 TIME DAILY; GOOD COMPLIANCE WITH TREATMENT
     Route: 048
     Dates: start: 20090101, end: 20090309
  3. METHOTREXATE [Concomitant]
     Dosage: 20 MG TOTAL WEEKLY
     Route: 058
  4. SPECIAFOLDINE [Concomitant]
     Route: 048
     Dates: start: 20080801
  5. PRAZEPAM [Concomitant]
     Route: 048
     Dates: start: 20080801
  6. MYOLASTAN [Concomitant]
     Route: 048
     Dates: start: 20080801
  7. HUMIRA [Concomitant]
     Route: 058
     Dates: start: 20070101
  8. SOLUPRED [Concomitant]
     Dosage: 40 MG TOTAL DAILY
     Route: 048
     Dates: start: 20080801

REACTIONS (3)
  - DIARRHOEA [None]
  - GENERAL PHYSICAL HEALTH DETERIORATION [None]
  - NIGHT SWEATS [None]
